FAERS Safety Report 21918512 (Version 2)
Quarter: 2023Q1

REPORT INFORMATION
  Report Type: Report from Study
  Country: PH (occurrence: None)
  Receive Date: 20230127
  Receipt Date: 20230207
  Transmission Date: 20230418
  Serious: Yes (Death, Hospitalization, Other)
  Sender: FDA-Public Use
  Company Number: 2023A015697

PATIENT
  Age: 792 Month
  Sex: Male

DRUGS (1)
  1. IRESSA [Suspect]
     Active Substance: GEFITINIB
     Indication: Lung neoplasm malignant
     Route: 048
     Dates: start: 2021, end: 2022

REACTIONS (6)
  - Metastases to central nervous system [Unknown]
  - Multiple organ dysfunction syndrome [Fatal]
  - Metastases to thyroid [Unknown]
  - Pneumonia [Unknown]
  - Hydrocephalus [Unknown]
  - Drug ineffective [Unknown]

NARRATIVE: CASE EVENT DATE: 20221201
